FAERS Safety Report 8315584-0 (Version None)
Quarter: 2012Q2

REPORT INFORMATION
  Report Type: 
  Country: None (occurrence: None)
  Receive Date: 20120426
  Receipt Date: 20120420
  Transmission Date: 20120825
  Serious: Yes (Other)
  Sender: FDA-Public Use
  Company Number: US-ROCHE-1022420

PATIENT
  Sex: Male
  Weight: 90.8 kg

DRUGS (5)
  1. ESKALITH [Concomitant]
     Indication: SCHIZOPHRENIA, PARANOID TYPE
  2. ZYPREXA [Concomitant]
     Indication: BIPOLAR DISORDER
  3. ACCUTANE [Suspect]
     Indication: ACNE
     Dates: start: 20010101, end: 20010101
  4. ZYPREXA [Concomitant]
     Indication: SCHIZOPHRENIA, PARANOID TYPE
  5. ESKALITH [Concomitant]
     Indication: BIPOLAR DISORDER

REACTIONS (5)
  - COLITIS ULCERATIVE [None]
  - BIPOLAR DISORDER [None]
  - SUICIDAL IDEATION [None]
  - SCHIZOPHRENIA, PARANOID TYPE [None]
  - DEPRESSION [None]
